FAERS Safety Report 9655626 (Version 2)
Quarter: 2013Q4

REPORT INFORMATION
  Report Type: Spontaneous
  Country: IE (occurrence: IE)
  Receive Date: 20131030
  Receipt Date: 20131119
  Transmission Date: 20140711
  Serious: No
  Sender: FDA-Public Use
  Company Number: IE-AMGEN-IRLSP2013075918

PATIENT
  Age: 33 Year
  Sex: Female

DRUGS (2)
  1. NEULASTA [Suspect]
     Indication: BREAST CANCER
     Dosage: 6 MG/0.6 ML, POST CHEMO 3 WEEKLY
     Route: 058
     Dates: start: 20131004
  2. CHEMOTHERAPEUTICS [Concomitant]
     Indication: BREAST CANCER
     Dosage: UNK

REACTIONS (1)
  - Back pain [Recovered/Resolved]
